FAERS Safety Report 19580232 (Version 2)
Quarter: 2021Q3

REPORT INFORMATION
  Report Type: Other
  Country: US (occurrence: US)
  Receive Date: 20210720
  Receipt Date: 20210824
  Transmission Date: 20211014
  Serious: Yes (Hospitalization)
  Sender: FDA-Public Use
  Company Number: US-ROCHE-2122127

PATIENT
  Age: 54 Year
  Sex: Male
  Weight: 115.32 kg

DRUGS (32)
  1. PROSCAR [Concomitant]
     Active Substance: FINASTERIDE
     Route: 048
  2. IBUPROFEN. [Concomitant]
     Active Substance: IBUPROFEN
  3. TYLENOL [Concomitant]
     Active Substance: ACETAMINOPHEN
  4. GABAPENTIN. [Concomitant]
     Active Substance: GABAPENTIN
     Indication: NEUROPATHY PERIPHERAL
     Dosage: ONGOING NO
     Route: 048
     Dates: start: 2016, end: 20210707
  5. MOTRIN [Concomitant]
     Active Substance: IBUPROFEN
     Route: 048
  6. ALTEPLASE. [Concomitant]
     Active Substance: ALTEPLASE
  7. BACLOFEN. [Concomitant]
     Active Substance: BACLOFEN
     Dosage: ONGOING YES
     Route: 048
     Dates: start: 20210707
  8. OMEPRAZOLE. [Concomitant]
     Active Substance: OMEPRAZOLE
     Dosage: ONGOING YES
     Route: 048
     Dates: start: 2006
  9. LATANOPROST. [Concomitant]
     Active Substance: LATANOPROST
     Indication: GLAUCOMA
     Dosage: 1 GTT IN EACH EYE AT BEDTIME?ONGOING YES
     Route: 047
     Dates: start: 2016
  10. OMEPRAZOLE MAGNESIUM. [Concomitant]
     Active Substance: OMEPRAZOLE MAGNESIUM
     Route: 048
  11. SOLU?MEDROL [Concomitant]
     Active Substance: METHYLPREDNISOLONE SODIUM SUCCINATE
     Dosage: AFTER OCREVUS INFUSION
  12. PEPCID [Concomitant]
     Active Substance: FAMOTIDINE
  13. SULFAMETHOXAZOLE;TRIMIPRAMINE [Concomitant]
     Dosage: 800?160 MG TABLETS
  14. SOLU?MEDROL [Concomitant]
     Active Substance: METHYLPREDNISOLONE SODIUM SUCCINATE
  15. HYDROCODONE/ACETAMINOPHEN [Concomitant]
     Active Substance: ACETAMINOPHEN\HYDROCODONE
     Dosage: 5?325 MG TABLETS
  16. LOSARTAN POTASSIUM. [Concomitant]
     Active Substance: LOSARTAN POTASSIUM
  17. METOPROLOL SUCCINATE. [Concomitant]
     Active Substance: METOPROLOL SUCCINATE
  18. PRINIVIL [Concomitant]
     Active Substance: LISINOPRIL
     Route: 048
  19. GABAPENTIN. [Concomitant]
     Active Substance: GABAPENTIN
     Dosage: ONGOING YES
     Route: 048
     Dates: start: 20210707
  20. INTERFERON BETA?1A [Concomitant]
     Active Substance: INTERFERON BETA-1A
  21. ZOCOR [Concomitant]
     Active Substance: SIMVASTATIN
     Dosage: EVERY BEDTIME
     Route: 048
  22. ADRENALINE [Concomitant]
     Active Substance: EPINEPHRINE
  23. BACLOFEN. [Concomitant]
     Active Substance: BACLOFEN
     Indication: MULTIPLE SCLEROSIS
     Route: 048
     Dates: start: 2001, end: 20210707
  24. CLONIDINE HCL [Concomitant]
     Active Substance: CLONIDINE HYDROCHLORIDE
  25. ECONAZOLE. [Concomitant]
     Active Substance: ECONAZOLE NITRATE
  26. MODAFINIL. [Concomitant]
     Active Substance: MODAFINIL
  27. CLONAZEPAM. [Concomitant]
     Active Substance: CLONAZEPAM
     Indication: SLEEP DISORDER
     Dosage: ONGOING YES?BEFORE BED
     Route: 048
     Dates: start: 20210707
  28. PROVIGIL [Concomitant]
     Active Substance: MODAFINIL
     Indication: MULTIPLE SCLEROSIS
     Dosage: ONGOING YES
     Route: 048
     Dates: start: 2006
  29. OCREVUS [Suspect]
     Active Substance: OCRELIZUMAB
     Indication: PRIMARY PROGRESSIVE MULTIPLE SCLEROSIS
     Dosage: ONGOING: YES?FIRST FULL DOSE ON 13/NOV/2018
     Route: 042
     Dates: start: 20180505
  30. TAMSULOSIN HCL [Concomitant]
     Active Substance: TAMSULOSIN HYDROCHLORIDE
     Dosage: EVERY BEDTIME
     Route: 048
  31. DALFAMPRIDINE. [Concomitant]
     Active Substance: DALFAMPRIDINE
  32. OXYCODONE [Concomitant]
     Active Substance: OXYCODONE
     Indication: ARTHRALGIA
     Dosage: ONGOING YES
     Route: 048
     Dates: start: 20210525

REACTIONS (10)
  - Pruritus [Not Recovered/Not Resolved]
  - Hypertension [Not Recovered/Not Resolved]
  - Gait inability [Not Recovered/Not Resolved]
  - Sepsis [Recovered/Resolved]
  - Cystitis [Recovered/Resolved]
  - Urticaria [Not Recovered/Not Resolved]
  - Erythema [Recovered/Resolved]
  - Neuropathy peripheral [Recovering/Resolving]
  - Blood cholesterol increased [Not Recovered/Not Resolved]
  - Constipation [Not Recovered/Not Resolved]

NARRATIVE: CASE EVENT DATE: 20180508
